FAERS Safety Report 6691264 (Version 3)
Quarter: 2014Q1

REPORT INFORMATION
  Report Type: Spontaneous
  Country: US (occurrence: None)
  Receive Date: 20080303
  Receipt Date: 20140304
  Transmission Date: 20141002
  Serious: Yes (Hospitalization, Other)
  Sender: FDA-Public Use
  Company Number: RB-6871-2007

PATIENT
  Age: 0 Year
  Sex: 0

DRUGS (2)
  1. SUBOXONE [Suspect]
     Indication: PRODUCT USED FOR UNKNOWN INDICATION
     Route: 064
     Dates: start: 200501, end: 20050301
  2. SUBUTEX [Suspect]
     Indication: PRODUCT USED FOR UNKNOWN INDICATION
     Dosage: 16 MG, TRANSPLACENTAL, 20 MG TRANSPLACENTAL
     Route: 064
     Dates: start: 20050302, end: 200508

REACTIONS (2)
  - Maternal exposure during pregnancy [None]
  - Drug withdrawal syndrome neonatal [None]
